FAERS Safety Report 7880054-0 (Version None)
Quarter: 2011Q4

REPORT INFORMATION
  Report Type: 
  Country: None (occurrence: None)
  Receive Date: 20111101
  Receipt Date: 20111021
  Transmission Date: 20120403
  Serious: Yes (Death)
  Sender: FDA-Public Use
  Company Number: JP-AMGEN-JPNCT2011028582

PATIENT
  Age: 70 Year
  Sex: Male
  Weight: 54 kg

DRUGS (9)
  1. CORTICOSTEROIDS [Concomitant]
     Indication: PROPHYLAXIS
     Dosage: UNK
     Route: 065
  2. GRANISETRON [Concomitant]
     Dosage: UNK
     Route: 042
  3. DECADRON [Concomitant]
     Dosage: UNK
     Route: 042
  4. PANITUMUMAB [Suspect]
     Indication: COLORECTAL CANCER
     Dosage: 6 MG/KG, Q2WK
     Route: 041
     Dates: start: 20100729, end: 20100819
  5. FLUOROURACIL [Suspect]
     Indication: COLORECTAL CANCER
     Dosage: 540 MG, Q2WK
     Route: 040
     Dates: start: 20100729, end: 20100819
  6. ANTIHISTAMINES [Concomitant]
     Indication: PROPHYLAXIS
     Dosage: UNK
     Route: 065
  7. IRINOTECAN HCL [Suspect]
     Indication: COLORECTAL CANCER
     Dosage: 230 MG, Q2WK
     Route: 041
     Dates: start: 20100729, end: 20100819
  8. FLUOROURACIL [Suspect]
     Dosage: 3200 MG, Q2WK
     Route: 041
     Dates: start: 20100729, end: 20100819
  9. LEVOLEUCOVORIN CALCIUM [Suspect]
     Indication: COLORECTAL CANCER
     Dosage: 300 MG, Q2WK
     Route: 041
     Dates: start: 20100729, end: 20100819

REACTIONS (4)
  - NEUTROPHIL COUNT DECREASED [None]
  - DERMATITIS [None]
  - PNEUMONIA [None]
  - DECREASED APPETITE [None]
